FAERS Safety Report 8089918 (Version 4)
Quarter: 2013Q1

REPORT INFORMATION
  Report Type: Spontaneous
  Country: US (occurrence: US)
  Receive Date: 20110815
  Receipt Date: 20130104
  Transmission Date: 20140127
  Serious: Yes (Other)
  Sender: FDA-Public Use
  Company Number: US-ROCHE-795879

PATIENT
  Age: 19 Year
  Sex: Female
  Weight: 104.42 kg

DRUGS (2)
  1. ACCUTANE [Suspect]
     Indication: ACNE
     Route: 065
     Dates: start: 198505, end: 198602
  2. ACCUTANE [Suspect]
     Route: 065
     Dates: start: 200009, end: 200010

REACTIONS (6)
  - Colitis ulcerative [Unknown]
  - Inflammatory bowel disease [Unknown]
  - Depression [Not Recovered/Not Resolved]
  - Injury [Unknown]
  - Blood triglycerides increased [Unknown]
  - Acne [Unknown]
